FAERS Safety Report 8534211-0 (Version None)
Quarter: 2012Q3

REPORT INFORMATION
  Report Type: 
  Country: None (occurrence: None)
  Receive Date: 20120724
  Receipt Date: 20120716
  Transmission Date: 20120928
  Serious: Yes (Other)
  Sender: FDA-Public Use
  Company Number: US-ACTELION-A-US2010-35843

PATIENT

DRUGS (11)
  1. LORAZEPAM [Concomitant]
  2. FLOLAN [Concomitant]
  3. ONDANSETRON [Concomitant]
  4. OXYCODONE HCL [Concomitant]
  5. PROZAC [Concomitant]
  6. COUMADIN [Concomitant]
  7. FUROSEMIDE [Concomitant]
  8. ZOLPIDEM [Concomitant]
  9. TRACLEER [Suspect]
     Indication: PULMONARY ARTERIAL HYPERTENSION
     Dosage: UNK
     Route: 048
     Dates: start: 20021108
  10. COMPAZINE [Concomitant]
  11. POTASSIUM CHLORIDE [Concomitant]

REACTIONS (8)
  - CHEMOTHERAPY [None]
  - DYSPNOEA EXERTIONAL [None]
  - FATIGUE [None]
  - COLECTOMY [None]
  - K-RAS GENE MUTATION [None]
  - COLON CANCER [None]
  - MASS [None]
  - PERICARDIAL EFFUSION [None]
